FAERS Safety Report 4785546-9 (Version None)
Quarter: 2005Q3

REPORT INFORMATION
  Report Type: 
  Country: None (occurrence: None)
  Receive Date: 20050929
  Receipt Date: 20050927
  Transmission Date: 20060218
  Serious: Yes (Disabling)
  Sender: FDA-Public Use
  Company Number: TPG2005A00391

PATIENT
  Age: 47 Year
  Sex: Female

DRUGS (1)
  1. LANSOPRAZOLE [Suspect]
     Dosage: ON DEMAND PER ORAL
     Route: 048
     Dates: start: 20020830

REACTIONS (2)
  - CARPAL TUNNEL SYNDROME [None]
  - POLYNEUROPATHY [None]
